FAERS Safety Report 25637019 (Version 4)
Quarter: 2025Q4

REPORT INFORMATION
  Report Type: Spontaneous
  Country: CA (occurrence: CA)
  Receive Date: 20250804
  Receipt Date: 20251103
  Transmission Date: 20260118
  Serious: Yes (Other)
  Sender: CELLTRION
  Company Number: CA-CELLTRION INC.-2025CA025783

PATIENT

DRUGS (3)
  1. INFLIXIMAB [Suspect]
     Active Substance: INFLIXIMAB
     Indication: Crohn^s disease
     Dosage: 300 MG EVERY 6 WEEKS (MAINTENANCE)
     Route: 042
     Dates: start: 20250613
  2. INFLIXIMAB [Suspect]
     Active Substance: INFLIXIMAB
     Dosage: LOADING DOSES WEEK 0,2,6- MAINTENANCE - 300 MG - IV (INTRAVENOUS) EVERY 4 WEEKS
     Route: 042
     Dates: start: 20250725
  3. INFLIXIMAB [Suspect]
     Active Substance: INFLIXIMAB
     Dosage: INDUCTION WAS GIVEN

REACTIONS (4)
  - Crohn^s disease [Unknown]
  - Nerve compression [Unknown]
  - Intentional product use issue [Unknown]
  - Off label use [Unknown]

NARRATIVE: CASE EVENT DATE: 20250101
